FAERS Safety Report 10063291 (Version 1)
Quarter: 2014Q2

REPORT INFORMATION
  Report Type: Spontaneous
  Country: DK (occurrence: DK)
  Receive Date: 20140407
  Receipt Date: 20140407
  Transmission Date: 20141212
  Serious: Yes (Hospitalization)
  Sender: FDA-Public Use
  Company Number: DK-ALLERGAN-1406800US

PATIENT
  Age: 68 Year
  Sex: Female
  Weight: 77 kg

DRUGS (2)
  1. TROSPIUM CHLORIDE UNK [Suspect]
     Indication: URINARY INCONTINENCE
     Dosage: 60 MG, QD
     Route: 048
     Dates: start: 20130131, end: 20130821
  2. ELTROXIN [Concomitant]
     Indication: HYPOTHYROIDIC GOITRE
     Dosage: UNK
     Dates: start: 19900401

REACTIONS (7)
  - Atrial fibrillation [Recovered/Resolved]
  - Cystitis [Recovered/Resolved]
  - Mental impairment [Recovered/Resolved]
  - Mucosal dryness [Recovered/Resolved]
  - Oedema [Recovered/Resolved]
  - Dysuria [Recovered/Resolved]
  - Headache [Recovered/Resolved]
